FAERS Safety Report 7197276-7 (Version None)
Quarter: 2010Q4

REPORT INFORMATION
  Report Type: 
  Country: None (occurrence: None)
  Receive Date: 20101226
  Receipt Date: 20101213
  Transmission Date: 20110411
  Serious: Yes (Hospitalization)
  Sender: FDA-Public Use
  Company Number: US-CELGENEUS-163-21880-10121799

PATIENT
  Sex: Female

DRUGS (3)
  1. REVLIMID [Suspect]
     Indication: MULTIPLE MYELOMA
     Route: 048
     Dates: start: 20080501, end: 20080101
  2. REVLIMID [Suspect]
     Route: 048
     Dates: start: 20080601
  3. REVLIMID [Suspect]
     Route: 048
     Dates: start: 20101201

REACTIONS (1)
  - RENAL DISORDER [None]
